FAERS Safety Report 11630559 (Version 1)
Quarter: 2015Q4

REPORT INFORMATION
  Report Type: Spontaneous
  Country: US (occurrence: US)
  Receive Date: 20151014
  Receipt Date: 20151014
  Transmission Date: 20160304
  Serious: No
  Sender: FDA-Public Use
  Company Number: US-UNICHEM LABORATORIES LIMITED-UCM201502-000097

PATIENT
  Sex: Female

DRUGS (1)
  1. HYDROCHLOROTHIAZIDE. [Suspect]
     Active Substance: HYDROCHLOROTHIAZIDE
     Indication: DIASTOLIC DYSFUNCTION
     Route: 048
     Dates: start: 2007

REACTIONS (5)
  - Coeliac disease [Not Recovered/Not Resolved]
  - Flatulence [Recovering/Resolving]
  - Sinusitis [Recovering/Resolving]
  - Pharyngitis [Recovering/Resolving]
  - Hiatus hernia [Unknown]

NARRATIVE: CASE EVENT DATE: 201412
